FAERS Safety Report 20727858 (Version 1)
Quarter: 2022Q2

REPORT INFORMATION
  Report Type: Spontaneous
  Country: US (occurrence: US)
  Receive Date: 20220419
  Receipt Date: 20220419
  Transmission Date: 20220720
  Serious: Yes (Other)
  Sender: FDA-Public Use
  Company Number: US-STRIDES ARCOLAB LIMITED-2022SP004201

PATIENT
  Age: 70 Year
  Sex: Female

DRUGS (8)
  1. PREDNISOLONE [Suspect]
     Active Substance: PREDNISOLONE
     Indication: Idiopathic pulmonary fibrosis
     Dosage: 10 MILLIGRAM DAILY
     Route: 048
  2. PREDNISOLONE [Suspect]
     Active Substance: PREDNISOLONE
     Dosage: UNK (PREDNISOLONE ACETATE)
     Route: 065
  3. METHOTREXATE [Suspect]
     Active Substance: METHOTREXATE
     Indication: Idiopathic pulmonary fibrosis
     Dosage: 10 MILLIGRAM  WEEKLY
     Route: 065
  4. OZURDEX [Suspect]
     Active Substance: DEXAMETHASONE
     Indication: Macular oedema
     Dosage: UNK INTRAVITREAL DEXAMETHASONE IMPLANT INJECTIONS IN THE LEFT EYE SIX INTRAVITREAL IMPLANTS
     Route: 031
  5. TETRACAINE [Concomitant]
     Active Substance: TETRACAINE
     Indication: Anaesthesia
     Dosage: UNK APPLIED TO THE LEFT EYE
     Route: 061
  6. LIDOCAINE [Concomitant]
     Active Substance: LIDOCAINE
     Indication: Anaesthesia
     Dosage: UNK SUBCONJUNCTIVAL INJECTION OF 2% LIDOCAINE SOLUTION GIVEN INFEROTEMPORALLY
     Route: 031
  7. POVIDONE-IODINE [Concomitant]
     Active Substance: POVIDONE-IODINE
     Indication: Prophylaxis
     Dosage: UNK INSTILLED IN THE INFERIOR CONJUNCTIVAL CUL-DE-SA; HE EYELIDS AND LASHES WERE SWABBED
     Route: 031
  8. SODIUM CHLORIDE [Concomitant]
     Active Substance: SODIUM CHLORIDE
     Indication: Eye irrigation
     Dosage: UNK OCULAR SURFACE WAS IRRIGATED
     Route: 065

REACTIONS (4)
  - Wound complication [Unknown]
  - Impaired healing [Unknown]
  - Bacterial endophthalmitis [Recovered/Resolved]
  - Off label use [Unknown]
